FAERS Safety Report 12605108 (Version 2)
Quarter: 2020Q1

REPORT INFORMATION
  Report Type: Report from Study
  Country: US (occurrence: US)
  Receive Date: 20160728
  Receipt Date: 20200225
  Transmission Date: 20200409
  Serious: Yes (Hospitalization, Other)
  Sender: FDA-Public Use
  Company Number: US-BEH-2016071587

PATIENT
  Age: 58 Year
  Sex: Female

DRUGS (2)
  1. HAEMATE P [Suspect]
     Active Substance: ANTIHEMOPHILIC FACTOR HUMAN
     Indication: COAGULOPATHY
     Dosage: UNK
     Route: 065
     Dates: start: 20140820
  2. HAEMATE P [Suspect]
     Active Substance: ANTIHEMOPHILIC FACTOR HUMAN
     Indication: COAGULOPATHY
     Dosage: UNK
     Route: 065
     Dates: start: 20140820

REACTIONS (3)
  - Multiple fractures [Unknown]
  - Fall [Unknown]
  - Blood pressure decreased [Unknown]

NARRATIVE: CASE EVENT DATE: 2015
